APPROVED DRUG PRODUCT: LANSOPRAZOLE
Active Ingredient: LANSOPRAZOLE
Strength: 30MG
Dosage Form/Route: CAPSULE, DELAYED REL PELLETS;ORAL
Application: A091212 | Product #002
Applicant: KRKA TOVARNA ZDRAVIL DD NOVO MESTO
Approved: Sep 16, 2013 | RLD: No | RS: No | Type: DISCN